FAERS Safety Report 5237750-3 (Version None)
Quarter: 2007Q1

REPORT INFORMATION
  Report Type: 
  Country: None (occurrence: None)
  Receive Date: 20070214
  Receipt Date: 20070212
  Transmission Date: 20070707
  Serious: Yes (Other)
  Sender: FDA-Public Use
  Company Number: US-GLAXOSMITHKLINE-A0639239A

PATIENT
  Age: 66 Year
  Sex: Female

DRUGS (3)
  1. VALTREX [Suspect]
     Indication: HERPES SIMPLEX
     Route: 048
     Dates: start: 19980101
  2. CRESTOR [Concomitant]
  3. LEVOXYL [Concomitant]

REACTIONS (4)
  - EYE PRURITUS [None]
  - HALLUCINATION [None]
  - HEART RATE INCREASED [None]
  - HEART RATE IRREGULAR [None]
